FAERS Safety Report 7331255-1 (Version None)
Quarter: 2011Q1

REPORT INFORMATION
  Report Type: 
  Country: None (occurrence: None)
  Receive Date: 20110304
  Receipt Date: 20110301
  Transmission Date: 20110831
  Serious: Yes (Other)
  Sender: FDA-Public Use
  Company Number: AT-PFIZER INC-2011044172

PATIENT
  Age: 45 Year
  Sex: Female

DRUGS (5)
  1. DILATREND [Concomitant]
     Dosage: UNK
     Route: 048
  2. THYREX [Concomitant]
     Dosage: UNK
     Route: 048
  3. TRESLEEN [Suspect]
     Dosage: 50 MG, 1X/DAY
     Route: 048
     Dates: start: 20010101
  4. BLOPRESS [Concomitant]
     Dosage: UNK
     Route: 048
  5. MEFENAMIC ACID [Concomitant]
     Dosage: UNK
     Route: 048

REACTIONS (1)
  - TONGUE NEOPLASM BENIGN [None]
